FAERS Safety Report 18022869 (Version 5)
Quarter: 2020Q3

REPORT INFORMATION
  Report Type: Report from Study
  Country: PL (occurrence: PL)
  Receive Date: 20200715
  Receipt Date: 20200812
  Transmission Date: 20201103
  Serious: Yes (Other)
  Sender: FDA-Public Use
  Company Number: PL-ROCHE-2640688

PATIENT
  Age: 69 Year
  Sex: Female
  Weight: 72 kg

DRUGS (29)
  1. ATEZOLIZUMAB. [Suspect]
     Active Substance: ATEZOLIZUMAB
     Indication: HER2 POSITIVE BREAST CANCER
     Route: 042
     Dates: start: 20200325
  2. CLEMASTINUM [Concomitant]
     Active Substance: CLEMASTINE FUMARATE
     Route: 042
     Dates: start: 20200624, end: 20200624
  3. FAMOGAST [Concomitant]
     Route: 048
     Dates: start: 20200624, end: 20200624
  4. ONDANSETRON [Concomitant]
     Active Substance: ONDANSETRON
     Route: 042
     Dates: start: 20200617, end: 20200617
  5. DEXAVEN [Concomitant]
     Active Substance: DEXAMETHASONE
     Route: 042
     Dates: start: 20200617, end: 20200617
  6. DOXORUBICIN [Suspect]
     Active Substance: DOXORUBICIN
     Indication: HER2 POSITIVE BREAST CANCER
     Dosage: ON 06/MAY/2020, SHE RECEIVED LAST DOSE OF DOXORUBICIN (108 MG) PRIOR TO SAE ONSET
     Route: 042
     Dates: start: 20200325
  7. DEXAVEN [Concomitant]
     Active Substance: DEXAMETHASONE
     Route: 042
     Dates: start: 20200701, end: 20200701
  8. CYCLOPHOSPHAMIDE. [Suspect]
     Active Substance: CYCLOPHOSPHAMIDE
     Indication: HER2 POSITIVE BREAST CANCER
     Dosage: ON 06/MAY/2020, SHE RECEIVED LAST DOSE OF CYCLOPHOSPHAMIDE (1080 MG) PRIOR TO SAE ONSET
     Route: 042
     Dates: start: 20200325
  9. CLEMASTIN [Concomitant]
     Active Substance: CLEMASTINE
     Route: 042
     Dates: start: 20200617, end: 20200617
  10. EUTHYROX [Concomitant]
     Active Substance: LEVOTHYROXINE SODIUM
     Route: 048
     Dates: start: 20200618, end: 20200729
  11. TRASTUZUMAB. [Suspect]
     Active Substance: TRASTUZUMAB
     Route: 042
  12. PERTUZUMAB. [Suspect]
     Active Substance: PERTUZUMAB
     Indication: HER2 POSITIVE BREAST CANCER
     Dosage: LOADING DOSE?ON 01/JUL//2020, SHE RECEIVED LAST DOSE OF PERTUZUMAB (420 MG) PRIOR TO SAE ONSET
     Route: 042
     Dates: start: 20200520
  13. ONDANSETRON [Concomitant]
     Active Substance: ONDANSETRON
     Route: 042
     Dates: start: 20200624, end: 20200624
  14. EUTHYROX [Concomitant]
     Active Substance: LEVOTHYROXINE SODIUM
     Route: 048
     Dates: start: 20200630
  15. CLEMASTINUM [Concomitant]
     Active Substance: CLEMASTINE FUMARATE
     Route: 042
     Dates: start: 20200610, end: 20200610
  16. FAMOGAST [Concomitant]
     Route: 042
     Dates: start: 20200617, end: 20200617
  17. ONDANSETRON [Concomitant]
     Active Substance: ONDANSETRON
     Route: 042
     Dates: start: 20200701, end: 20200701
  18. TRASTUZUMAB. [Suspect]
     Active Substance: TRASTUZUMAB
     Indication: HER2 POSITIVE BREAST CANCER
     Dosage: LOADING DOSE.?ON 01/JUL//2020, SHE RECEIVED LAST DOSE OF TRASTUZUMAB (432 MG) PRIOR TO SAE ONSET
     Route: 041
     Dates: start: 20200520
  19. PERTUZUMAB. [Suspect]
     Active Substance: PERTUZUMAB
     Dosage: MAINTENANCE DOSE
     Route: 042
  20. TARDYFERON?FOL [Concomitant]
     Indication: ANAEMIA
     Route: 048
     Dates: start: 20200521, end: 20200729
  21. CLEMASTINUM [Concomitant]
     Active Substance: CLEMASTINE FUMARATE
     Route: 042
     Dates: start: 20200701, end: 20200701
  22. ONDANSETRON [Concomitant]
     Active Substance: ONDANSETRON
     Route: 042
     Dates: start: 20200610, end: 20200610
  23. METOPROLOL. [Concomitant]
     Active Substance: METOPROLOL
     Indication: HYPERTENSION
     Route: 048
  24. BUDESONIDE. [Concomitant]
     Active Substance: BUDESONIDE
     Indication: ASTHMA
  25. FAMOGAST [Concomitant]
     Route: 048
     Dates: start: 20200610, end: 20200610
  26. DEXAVEN [Concomitant]
     Active Substance: DEXAMETHASONE
     Route: 042
     Dates: start: 20200610, end: 20200610
  27. PACLITAXEL. [Suspect]
     Active Substance: PACLITAXEL
     Indication: HER2 POSITIVE BREAST CANCER
     Dosage: ON 01/JUL//2020, SHE RECEIVED LAST DOSE OF PACLITAXEL (140.8 MG) PRIOR TO SAE ONSET
     Route: 042
     Dates: start: 20200520
  28. FAMOGAST [Concomitant]
     Route: 048
     Dates: start: 20200701, end: 20200701
  29. DEXAVEN [Concomitant]
     Active Substance: DEXAMETHASONE
     Route: 042
     Dates: start: 20200624, end: 20200624

REACTIONS (1)
  - Immune-mediated pneumonitis [Recovered/Resolved]

NARRATIVE: CASE EVENT DATE: 20200709
